FAERS Safety Report 12243141 (Version 1)
Quarter: 2016Q2

REPORT INFORMATION
  Report Type: Spontaneous
  Country: US (occurrence: US)
  Receive Date: 20160406
  Receipt Date: 20160406
  Transmission Date: 20160815
  Serious: No
  Sender: FDA-Public Use
  Company Number: US-SA-2015SA032241

PATIENT
  Age: 90 Year
  Sex: Female

DRUGS (1)
  1. ALLEGRA-D [Suspect]
     Active Substance: FEXOFENADINE\PSEUDOEPHEDRINE
     Indication: EAR CONGESTION
     Dosage: DOSE: 180/240 MG
     Route: 048
     Dates: start: 20150311, end: 20150312

REACTIONS (1)
  - Insomnia [Unknown]
